FAERS Safety Report 9377889 (Version 1)
Quarter: 2013Q3

REPORT INFORMATION
  Report Type: Spontaneous
  Country: US (occurrence: US)
  Receive Date: 20130701
  Receipt Date: 20130701
  Transmission Date: 20140515
  Serious: No
  Sender: FDA-Public Use
  Company Number: US-TEVA-415789USA

PATIENT
  Age: 44 Year
  Sex: Female
  Weight: 59.93 kg

DRUGS (5)
  1. PARAGARD 380A [Suspect]
     Indication: CONTRACEPTION
     Route: 015
     Dates: start: 20130328, end: 20130509
  2. PARAGARD 380A [Suspect]
     Route: 015
     Dates: start: 20130509
  3. EFFEXOR [Concomitant]
     Dosage: 75 MILLIGRAM DAILY;
  4. MULTIVITAMIN [Concomitant]
     Indication: VITAMIN SUPPLEMENTATION
  5. CALCIUM [Concomitant]
     Indication: MINERAL SUPPLEMENTATION

REACTIONS (1)
  - Device expulsion [Recovered/Resolved]
